FAERS Safety Report 10244927 (Version 1)
Quarter: 2014Q2

REPORT INFORMATION
  Report Type: Spontaneous
  Country: US (occurrence: US)
  Receive Date: 20140618
  Receipt Date: 20140618
  Transmission Date: 20141212
  Serious: No
  Sender: FDA-Public Use
  Company Number: US-GALDERMA-US14001043

PATIENT
  Age: 27 Year
  Sex: Female

DRUGS (10)
  1. MIRVASO (BRIMONIDINE) TOPICAL GEL, 0.33% [Suspect]
     Indication: ROSACEA
     Dosage: 0.33%
     Route: 061
     Dates: start: 20140306, end: 20140315
  2. BODY SHOP TONER [Concomitant]
     Indication: THERAPEUTIC SKIN CARE TOPICAL
     Route: 061
     Dates: start: 2011
  3. BODY SHOP MAKE UP REMOVER [Concomitant]
     Indication: THERAPEUTIC SKIN CARE TOPICAL
     Route: 061
     Dates: start: 2011
  4. BODY SHOP SINK IN VITAMIN MASK [Concomitant]
     Indication: DRY SKIN PROPHYLAXIS
     Route: 061
     Dates: start: 2012
  5. BODY SHOP SINK IN VITAMIN MASK [Concomitant]
     Indication: THERAPEUTIC SKIN CARE TOPICAL
  6. PREVPAC [Concomitant]
     Indication: HELICOBACTER INFECTION
     Dosage: 500-500-30 MG
     Route: 048
     Dates: start: 20140303, end: 20140317
  7. PERIDEX ORAL SOLUTION [Concomitant]
     Indication: DENTAL CARE
     Dosage: 30 ML
     Route: 048
     Dates: start: 20140306
  8. FERROUS SULFATE [Concomitant]
     Indication: ANAEMIA
     Dosage: 65 MG
     Route: 048
     Dates: start: 20140214
  9. THE BODY SHOP VITAMIN E CREAM CLEANSER [Concomitant]
     Indication: THERAPEUTIC SKIN CARE TOPICAL
     Route: 061
     Dates: start: 2012
  10. SEPHORA CRAYON JUMBO LINER [Concomitant]
     Indication: THERAPEUTIC SKIN CARE TOPICAL
     Route: 061
     Dates: start: 20140107

REACTIONS (5)
  - Condition aggravated [Recovering/Resolving]
  - Erythema [Recovering/Resolving]
  - Skin warm [Recovering/Resolving]
  - Flushing [Recovering/Resolving]
  - Drug ineffective [Not Recovered/Not Resolved]
